FAERS Safety Report 23830976 (Version 1)
Quarter: 2024Q2

REPORT INFORMATION
  Report Type: Spontaneous
  Country: US (occurrence: None)
  Receive Date: 20240507
  Receipt Date: 20240507
  Transmission Date: 20240716
  Serious: Yes (Hospitalization)
  Sender: FDA-Public Use
  Company Number: None

PATIENT
  Age: 73 Year
  Sex: Male
  Weight: 79 kg

DRUGS (5)
  1. CIPROFLOXACIN [Suspect]
     Active Substance: CIPROFLOXACIN
     Indication: Urinary tract infection
     Dosage: FREQUENCY : TWICE A DAY;?
     Route: 048
     Dates: start: 20240408, end: 20240409
  2. OMEPRAZOLE [Suspect]
     Active Substance: DONEPEZIL HYDROCHLORIDE\OMEPRAZOLE\OMEPRAZOLE MAGNESIUM
     Indication: Oesophagitis
     Dosage: FREQUENCY : TWICE A DAY;?
     Route: 048
     Dates: start: 20230202, end: 20230419
  3. PEMBROLIZUMAB [Suspect]
     Active Substance: PEMBROLIZUMAB
  4. ALEVE [Suspect]
     Active Substance: NAPROXEN SODIUM
  5. ADVIL [Suspect]
     Active Substance: IBUPROFEN

REACTIONS (7)
  - Tubulointerstitial nephritis [None]
  - Nephritis [None]
  - Acute kidney injury [None]
  - Acute kidney injury [None]
  - Oesophagitis [None]
  - Urinary tract infection [None]
  - Neck pain [None]

NARRATIVE: CASE EVENT DATE: 20240201
